FAERS Safety Report 14858425 (Version 1)
Quarter: 2018Q2

REPORT INFORMATION
  Report Type: Spontaneous
  Country: FR (occurrence: FR)
  Receive Date: 20180508
  Receipt Date: 20180508
  Transmission Date: 20180711
  Serious: Yes (Other)
  Sender: FDA-Public Use
  Company Number: FR-MERCK KGAA-2047358

PATIENT
  Age: 30 Year
  Sex: Female

DRUGS (1)
  1. NOVOTHYROX [Suspect]
     Active Substance: LEVOTHYROXINE SODIUM
     Indication: PRODUCT USED FOR UNKNOWN INDICATION

REACTIONS (48)
  - Loss of consciousness [Recovered/Resolved]
  - Personal relationship issue [Recovered/Resolved]
  - Myalgia [None]
  - Migraine [None]
  - Chest pain [None]
  - Gait disturbance [Recovered/Resolved]
  - Feeling hot [None]
  - Restlessness [None]
  - Eye irritation [None]
  - Amnesia [None]
  - Arthralgia [Recovered/Resolved]
  - Tremor [None]
  - Irritability [None]
  - Malaise [Recovered/Resolved]
  - Emotional distress [None]
  - Muscle spasms [None]
  - Insomnia [None]
  - Loss of personal independence in daily activities [Recovered/Resolved]
  - Dry throat [None]
  - Feeling drunk [None]
  - Endometriosis [None]
  - Apathy [None]
  - Disturbance in attention [Recovered/Resolved]
  - Hyperthyroidism [None]
  - Hyporeflexia [None]
  - Feeling guilty [None]
  - Hypokinesia [None]
  - Pain [None]
  - Agitation [None]
  - Increased appetite [None]
  - Fatigue [Recovered/Resolved]
  - Breast pain [None]
  - Distractibility [None]
  - Depression [None]
  - Libido decreased [None]
  - Fall [Recovered/Resolved]
  - Nausea [None]
  - Vomiting [None]
  - Headache [None]
  - Palpitations [None]
  - Polydipsia [None]
  - Dizziness [None]
  - Stress [None]
  - Anger [None]
  - Diarrhoea [None]
  - Hypothyroidism [None]
  - Asocial behaviour [Recovered/Resolved]
  - Somnolence [None]

NARRATIVE: CASE EVENT DATE: 201708
